FAERS Safety Report 22221142 (Version 1)
Quarter: 2023Q2

REPORT INFORMATION
  Report Type: Spontaneous
  Country: PL (occurrence: PL)
  Receive Date: 20230418
  Receipt Date: 20230418
  Transmission Date: 20230721
  Serious: Yes (Death, Other)
  Sender: FDA-Public Use
  Company Number: PL-ABBVIE-4732341

PATIENT

DRUGS (2)
  1. VENETOCLAX [Suspect]
     Active Substance: VENETOCLAX
     Indication: Chronic lymphocytic leukaemia
     Route: 048
  2. OBINUTUZUMAB [Concomitant]
     Active Substance: OBINUTUZUMAB
     Indication: Chronic lymphocytic leukaemia

REACTIONS (8)
  - COVID-19 [Fatal]
  - Tumour lysis syndrome [Unknown]
  - Pneumonia [Unknown]
  - Tumour lysis syndrome [Unknown]
  - Neutropenia [Unknown]
  - Febrile neutropenia [Unknown]
  - Neutropenia [Unknown]
  - COVID-19 [Unknown]
